FAERS Safety Report 9999249 (Version 1)
Quarter: 2014Q1

REPORT INFORMATION
  Report Type: Spontaneous
  Country: DK (occurrence: None)
  Receive Date: 20140310
  Receipt Date: 20140310
  Transmission Date: 20141002
  Serious: Yes (Disabling)
  Sender: FDA-Public Use
  Company Number: B0974309A

PATIENT
  Age: 40 Year
  Sex: Male

DRUGS (1)
  1. PAROXETINE HYDROCHLORIDE (FORMULATION UNKNOWN) (PAROXETINE HYDROCHLORIDE) [Suspect]
     Indication: STRESS
     Dates: start: 20061106

REACTIONS (11)
  - Disturbance in attention [None]
  - Fatigue [None]
  - Dizziness [None]
  - Depression [None]
  - Anxiety [None]
  - Dizziness [None]
  - Loss of employment [None]
  - Stress [None]
  - Muscle tightness [None]
  - Headache [None]
  - Disease complication [None]
